FAERS Safety Report 12994970 (Version 1)
Quarter: 2016Q4

REPORT INFORMATION
  Report Type: Report from Study
  Country: None (occurrence: ES)
  Receive Date: 20161202
  Receipt Date: 20161202
  Transmission Date: 20170207
  Serious: Yes (Death, Hospitalization)
  Sender: FDA-Public Use
  Company Number: ES-ABBVIE-16K-144-1797046-00

PATIENT
  Age: 67 Year
  Sex: Male

DRUGS (1)
  1. DUODOPA [Suspect]
     Active Substance: CARBIDOPA\LEVODOPA
     Indication: PARKINSON^S DISEASE
     Route: 050
     Dates: start: 20111212, end: 20161128

REACTIONS (5)
  - Volvulus [Recovering/Resolving]
  - Intestinal obstruction [Recovering/Resolving]
  - Cardio-respiratory arrest [Fatal]
  - Abdominal rigidity [Unknown]
  - Abdominal distension [Unknown]

NARRATIVE: CASE EVENT DATE: 201611
